FAERS Safety Report 7959497-2 (Version None)
Quarter: 2011Q4

REPORT INFORMATION
  Report Type: 
  Country: None (occurrence: None)
  Receive Date: 20111206
  Receipt Date: 20111129
  Transmission Date: 20120403
  Serious: No
  Sender: FDA-Public Use
  Company Number: US-PFIZER INC-2011292407

PATIENT
  Age: 60 Year
  Sex: Female

DRUGS (1)
  1. ARGATROBAN [Suspect]
     Dosage: 5.7 MCG/KG/MIN
     Route: 041

REACTIONS (1)
  - ACTIVATED PARTIAL THROMBOPLASTIN TIME ABNORMAL [None]
